FAERS Safety Report 10429300 (Version 1)
Quarter: 2014Q3

REPORT INFORMATION
  Report Type: Spontaneous
  Country: US (occurrence: None)
  Receive Date: 20140902
  Receipt Date: 20140902
  Transmission Date: 20150326
  Serious: Yes (Hospitalization)
  Sender: FDA-Public Use
  Company Number: None

PATIENT
  Age: 50 Year
  Sex: Female

DRUGS (13)
  1. DOCUSATE [Concomitant]
     Active Substance: DOCUSATE
  2. BISACODYL. [Concomitant]
     Active Substance: BISACODYL
  3. CALCIUM CHOLORIDE [Concomitant]
  4. KETOROLAC [Concomitant]
     Active Substance: KETOROLAC\KETOROLAC TROMETHAMINE
  5. DIPHENHYDRAMINE [Concomitant]
     Active Substance: DIPHENHYDRAMINE
  6. POTASSIUM CHLORIDE. [Concomitant]
     Active Substance: POTASSIUM CHLORIDE
  7. FUROSEMIDE. [Concomitant]
     Active Substance: FUROSEMIDE
  8. NALOXONE [Concomitant]
     Active Substance: NALOXONE
  9. ACETAMINOPHEN. [Concomitant]
     Active Substance: ACETAMINOPHEN
  10. HEPARIN [Suspect]
     Active Substance: HEPARIN SODIUM
     Indication: PROPHYLAXIS
     Dosage: 5000 UNITS EVERY 8 HOURS SC
     Route: 058
     Dates: start: 20140708, end: 20140810
  11. IBUPROFEN. [Concomitant]
     Active Substance: IBUPROFEN
  12. ONDANSETRON [Concomitant]
     Active Substance: ONDANSETRON
  13. CHLORHEXIDINE [Concomitant]
     Active Substance: CHLORHEXIDINE

REACTIONS (4)
  - Haemoglobin decreased [None]
  - Prothrombin time prolonged [None]
  - Syncope [None]
  - Haemorrhage [None]

NARRATIVE: CASE EVENT DATE: 20140710
